FAERS Safety Report 12996268 (Version 1)
Quarter: 2016Q4

REPORT INFORMATION
  Report Type: Spontaneous
  Country: US (occurrence: US)
  Receive Date: 20161203
  Receipt Date: 20161203
  Transmission Date: 20170207
  Serious: Yes (Other)
  Sender: FDA-Public Use
  Company Number: US-ACCORD-046112

PATIENT
  Age: 61 Year
  Sex: Male

DRUGS (2)
  1. RITONAVIR/OMBITASVIR/DASABUVIR/PARITAPREVIR [Interacting]
     Active Substance: DASABUVIR\OMBITASVIR\PARITAPREVIR\RITONAVIR
     Indication: HEPATITIS C
  2. TACROLIMUS. [Suspect]
     Active Substance: TACROLIMUS
     Indication: LIVER TRANSPLANT
     Dosage: RESTARTED ON 0.5 MG OF TACROLIMUS TWICE DAILY

REACTIONS (2)
  - Drug interaction [Unknown]
  - Renal tubular necrosis [Unknown]
